FAERS Safety Report 25425621 (Version 3)
Quarter: 2025Q4

REPORT INFORMATION
  Report Type: Report from Study
  Country: KR (occurrence: KR)
  Receive Date: 20250611
  Receipt Date: 20251121
  Transmission Date: 20260118
  Serious: Yes (Death)
  Sender: ABBVIE
  Company Number: KR-ABBVIE-6279240

PATIENT
  Age: 65 Year
  Sex: Male
  Weight: 65 kg

DRUGS (28)
  1. VENCLEXTA [Suspect]
     Active Substance: VENETOCLAX
     Indication: Acute myeloid leukaemia
     Route: 048
     Dates: start: 20250318, end: 20250318
  2. VENCLEXTA [Suspect]
     Active Substance: VENETOCLAX
     Indication: Acute myeloid leukaemia
     Route: 048
     Dates: start: 20250317, end: 20250317
  3. VENCLEXTA [Suspect]
     Active Substance: VENETOCLAX
     Indication: Acute myeloid leukaemia
     Route: 048
     Dates: start: 20250319, end: 20250413
  4. MONTMORILLONITE [Concomitant]
     Active Substance: MONTMORILLONITE
     Indication: Prophylaxis against diarrhoea
     Dosage: UNIT DOSE: 1 PACK, SUSP 20ML, PRN
     Route: 048
     Dates: start: 20250322, end: 20250414
  5. Winuf [Concomitant]
     Indication: Asthenia
     Route: 042
     Dates: start: 20250331, end: 20250424
  6. Daewon morphine sulfate hydrate [Concomitant]
     Indication: Abdominal pain
     Dosage: INJ 1ML, PRN
     Route: 042
     Dates: start: 20250423, end: 20250424
  7. Hydrine [Concomitant]
     Indication: Acute myeloid leukaemia
     Dosage: CAP 500MG
     Route: 048
     Dates: start: 20250417, end: 20250422
  8. Fexosta [Concomitant]
     Indication: Prophylaxis
     Dosage: TAB
     Route: 048
     Dates: start: 20250318, end: 20250320
  9. NYSTATIN [Concomitant]
     Active Substance: NYSTATIN
     Indication: Mucosal inflammation
     Dosage: TIME INTERVAL: 0.33333333 DAYS: JT
     Route: 048
     Dates: start: 20250313, end: 20250423
  10. BENZYDAMINE HYDROCHLORIDE [Concomitant]
     Active Substance: BENZYDAMINE HYDROCHLORIDE
     Indication: Mucosal inflammation
     Dosage: 100ML
     Dates: start: 20250308, end: 20250422
  11. MAXIPIME [Concomitant]
     Active Substance: CEFEPIME HYDROCHLORIDE
     Indication: Mucosal inflammation
     Dosage: TIME INTERVAL: 0.33333333 DAYS: INJ 1G
     Route: 042
     Dates: start: 20250322, end: 20250421
  12. Decilid [Concomitant]
     Indication: Acute myeloid leukaemia
     Dosage: INJ 40MG
     Route: 042
     Dates: start: 20250317, end: 20250321
  13. Tasna [Concomitant]
     Indication: Prophylaxis
     Dosage: 500MG
     Route: 048
     Dates: start: 20250410, end: 20250424
  14. NEXIUM I.V. [Concomitant]
     Active Substance: ESOMEPRAZOLE SODIUM
     Indication: Pain prophylaxis
     Route: 042
     Dates: start: 20250308, end: 20250424
  15. Tazoperan [Concomitant]
     Indication: Mucosal inflammation
     Route: 042
     Dates: start: 20250308, end: 20250321
  16. PROPACETAMOL HYDROCHLORIDE [Concomitant]
     Active Substance: PROPACETAMOL HYDROCHLORIDE
     Indication: Pyrexia
     Dosage: PRN
     Route: 042
     Dates: start: 20250322, end: 20250322
  17. Olmec [Concomitant]
     Indication: Hypertension
     Route: 048
     Dates: start: 20250311, end: 20250423
  18. Huons karos [Concomitant]
     Indication: Hyperkalaemia
     Dosage: TIME INTERVAL: 0.33333333 DAYS: UNIT DOSE: 1 PACK, SUSPENSION
     Route: 048
     Dates: start: 20250404, end: 20250405
  19. LASIX [Concomitant]
     Active Substance: FUROSEMIDE
     Indication: Product used for unknown indication
     Route: 042
     Dates: start: 20250423, end: 20250423
  20. HYDROCORTISONE SODIUM SUCCINATE [Concomitant]
     Active Substance: HYDROCORTISONE SODIUM SUCCINATE
     Indication: Premedication
     Dosage: PRN
     Route: 042
     Dates: start: 20250314, end: 20250424
  21. Alpit [Concomitant]
     Indication: Abdominal pain
     Dosage: 5MG/ML
     Route: 042
     Dates: start: 20250420, end: 20250423
  22. Peniramin [Concomitant]
     Indication: Premedication
     Dosage: PRN
     Route: 042
     Dates: start: 20250314, end: 20250424
  23. Oneflu [Concomitant]
     Indication: Mucosal inflammation
     Dosage: 50ML
     Route: 042
     Dates: start: 20250313, end: 20250423
  24. Meckool [Concomitant]
     Indication: Prophylaxis of nausea and vomiting
     Route: 042
     Dates: start: 20250421, end: 20250422
  25. Urchol [Concomitant]
     Indication: Prophylaxis
     Route: 048
     Dates: start: 20250317, end: 20250318
  26. ALBUMIN HUMAN [Concomitant]
     Active Substance: ALBUMIN HUMAN
     Indication: Hypoalbuminaemia
     Dosage: GREENCROSS INJ 20% 100ML, PRN
     Route: 042
     Dates: start: 20250410, end: 20250423
  27. Ondant [Concomitant]
     Indication: Prophylaxis of nausea and vomiting
     Route: 042
     Dates: start: 20250317, end: 20250321
  28. ULTRACET [Concomitant]
     Active Substance: ACETAMINOPHEN\TRAMADOL HYDROCHLORIDE
     Indication: Gingival pain
     Route: 048
     Dates: start: 20250308, end: 20250423

REACTIONS (1)
  - Pneumonia [Fatal]

NARRATIVE: CASE EVENT DATE: 20250420
